FAERS Safety Report 7299015-8 (Version None)
Quarter: 2011Q1

REPORT INFORMATION
  Report Type: 
  Country: None (occurrence: None)
  Receive Date: 20110217
  Receipt Date: 20110214
  Transmission Date: 20110831
  Serious: No
  Sender: FDA-Public Use
  Company Number: US-PFIZER INC-2011033410

PATIENT
  Sex: Female
  Weight: 63.492 kg

DRUGS (1)
  1. ADVIL [Suspect]
     Indication: MYALGIA
     Dosage: 200 MG, AS NEEDED
     Route: 048

REACTIONS (1)
  - HEART RATE ABNORMAL [None]
